FAERS Safety Report 6837951-4 (Version None)
Quarter: 2010Q3

REPORT INFORMATION
  Report Type: 
  Country: None (occurrence: None)
  Receive Date: 20100713
  Receipt Date: 20070526
  Transmission Date: 20110219
  Serious: No
  Sender: FDA-Public Use
  Company Number: US-PFIZER INC-2007042811

PATIENT
  Sex: Female
  Weight: 42.272 kg

DRUGS (2)
  1. CHANTIX [Suspect]
     Indication: SMOKING CESSATION THERAPY
     Dosage: 0.5MG QD EVERY DAY TDD:0.5MG
     Dates: start: 20070515
  2. CONTRACEPTIVE, UNSPECIFIED [Concomitant]

REACTIONS (1)
  - FATIGUE [None]
